FAERS Safety Report 13532767 (Version 1)
Quarter: 2017Q2

REPORT INFORMATION
  Report Type: Spontaneous
  Country: US (occurrence: US)
  Receive Date: 20170510
  Receipt Date: 20170510
  Transmission Date: 20170830
  Serious: No
  Sender: FDA-Public Use
  Company Number: US-BAYER-2017-088234

PATIENT
  Age: 83 Year
  Sex: Female
  Weight: 48.98 kg

DRUGS (14)
  1. CENTRUM SILVER [Concomitant]
     Active Substance: MINERALS\VITAMINS
  2. ALIGN [Concomitant]
     Active Substance: BIFIDOBACTERIUM LONGUM SUBSP. INFANTIS
  3. CRANBERRY. [Concomitant]
     Active Substance: CRANBERRY
     Dosage: UNK
  4. ATENOLOL. [Concomitant]
     Active Substance: ATENOLOL
  5. QUINAPRIL. [Concomitant]
     Active Substance: QUINAPRIL
  6. TYLENOL EXTRA STRENGTH [Concomitant]
     Active Substance: ACETAMINOPHEN
     Dosage: 2-3 TIMES A DAY
  7. LACTAID [Concomitant]
     Active Substance: LACTASE
  8. LASIX [Concomitant]
     Active Substance: FUROSEMIDE
  9. CLARITIN [Suspect]
     Active Substance: LORATADINE
     Indication: RASH
     Dosage: UNK
     Route: 065
  10. CALTRATE +D [CALCIUM CARBONATE,VITAMIN D NOS] [Concomitant]
     Dosage: UNK
  11. ATIVAN [Concomitant]
     Active Substance: LORAZEPAM
  12. CRESTOR [Concomitant]
     Active Substance: ROSUVASTATIN CALCIUM
  13. APIXABAN [Concomitant]
     Active Substance: APIXABAN
  14. KLORVESS [POTASSIUM CHLORIDE] [Concomitant]

REACTIONS (1)
  - Off label use [Unknown]

NARRATIVE: CASE EVENT DATE: 201704
